FAERS Safety Report 6731043-0 (Version None)
Quarter: 2010Q2

REPORT INFORMATION
  Report Type: 
  Country: None (occurrence: None)
  Receive Date: 20100514
  Receipt Date: 20100505
  Transmission Date: 20101027
  Serious: Yes (Hospitalization)
  Sender: FDA-Public Use
  Company Number: LEO-2010-00371

PATIENT
  Age: 38 Year
  Sex: Female
  Weight: 60 kg

DRUGS (6)
  1. INNOHEP [Suspect]
     Indication: THROMBOSIS PROPHYLAXIS
     Dosage: 4500 IU (4500 IU, 1 IN 1 D)
     Dates: start: 20030901, end: 20040407
  2. ASPIRIN [Concomitant]
  3. VITAMIN SUPPLEMENT (VITAMINS /90003601/) [Concomitant]
  4. IRON (IRON) [Concomitant]
  5. GAVISCON (SODIUM BICARBONATE, ALUMINUM HYDROXIDE GEL, DRIED, ALGINIC A [Concomitant]
  6. OXYTOCIN [Concomitant]

REACTIONS (3)
  - DRUG EXPOSURE DURING PREGNANCY [None]
  - POSTPARTUM HAEMORRHAGE [None]
  - RETAINED PLACENTA OR MEMBRANES [None]
